FAERS Safety Report 7457813-1 (Version None)
Quarter: 2011Q2

REPORT INFORMATION
  Report Type: 
  Country: None (occurrence: None)
  Receive Date: 20110504
  Receipt Date: 20110421
  Transmission Date: 20111010
  Serious: Yes (Hospitalization, Other)
  Sender: FDA-Public Use
  Company Number: PHHY2011JP34557

PATIENT
  Sex: Male

DRUGS (13)
  1. AFINITOR [Suspect]
     Dosage: 5 MG, UNK
     Route: 048
     Dates: start: 20101201, end: 20101226
  2. AFINITOR [Suspect]
     Dosage: 10 MG, UNK
     Route: 048
     Dates: start: 20110227, end: 20110314
  3. SORAFENIB TOSILATE [Concomitant]
     Indication: METASTATIC RENAL CELL CARCINOMA
     Dosage: 800 MG, UNK
     Route: 048
     Dates: start: 20081101, end: 20101129
  4. AZUNOL [Concomitant]
     Route: 048
  5. OMEPRAZOLE [Concomitant]
     Dosage: 20 MG, UNK
     Route: 048
  6. AFINITOR [Suspect]
     Indication: METASTATIC RENAL CELL CARCINOMA
     Dosage: 10 MG, UNK
     Route: 048
     Dates: start: 20101130, end: 20101130
  7. SEPAMIT [Concomitant]
     Dosage: 30 MG, UNK
     Route: 048
  8. INTERFERON ALFA [Concomitant]
     Indication: METASTATIC RENAL CELL CARCINOMA
     Dosage: 6000000 IU, UNK
     Dates: start: 20050501, end: 20081001
  9. BIOFERMIN R [Concomitant]
     Dosage: 3 DF, UNK
     Route: 048
  10. AFINITOR [Suspect]
     Dosage: 5 MG, UNK
     Route: 048
     Dates: start: 20110215, end: 20110226
  11. TENORMIN [Concomitant]
     Dosage: 50 MG, UNK
     Route: 048
  12. BETAMETHASONE [Concomitant]
     Dosage: 0.75 MG, UNK
     Route: 048
  13. AFINITOR [Suspect]
     Dosage: 10 MG, UNK
     Route: 048
     Dates: start: 20101227, end: 20110210

REACTIONS (2)
  - C-REACTIVE PROTEIN INCREASED [None]
  - INTERSTITIAL LUNG DISEASE [None]
